FAERS Safety Report 24358033 (Version 2)
Quarter: 2024Q4

REPORT INFORMATION
  Report Type: Report from Study
  Country: BR (occurrence: BR)
  Receive Date: 20240924
  Receipt Date: 20241001
  Transmission Date: 20250115
  Serious: Yes (Other)
  Sender: JOHNSON AND JOHNSON
  Company Number: BR-JNJFOC-20240952542

PATIENT
  Age: 59 Year
  Sex: Female
  Weight: 59 kg

DRUGS (1)
  1. INFLIXIMAB [Suspect]
     Active Substance: INFLIXIMAB
     Indication: Ankylosing spondylitis
     Dosage: LAST INFUSION ON 22/MAY/2024
     Route: 041
     Dates: start: 20200916

REACTIONS (7)
  - Surgery [Unknown]
  - Illness [Unknown]
  - Skin wound [Unknown]
  - Dyshidrotic eczema [Unknown]
  - Rheumatic disorder [Unknown]
  - Pain [Unknown]
  - Inappropriate schedule of product administration [Unknown]
